FAERS Safety Report 6372704-5 (Version None)
Quarter: 2009Q3

REPORT INFORMATION
  Report Type: 
  Country: None (occurrence: None)
  Receive Date: 20090924
  Receipt Date: 20090410
  Transmission Date: 20100115
  Serious: Yes (Hospitalization)
  Sender: FDA-Public Use
  Company Number: US-ASTRAZENECA-2008UW27423

PATIENT
  Age: 660 Month
  Sex: Female
  Weight: 90.7 kg

DRUGS (5)
  1. SEROQUEL [Suspect]
     Indication: DEPRESSION
     Route: 048
     Dates: start: 19870101
  2. SEROQUEL [Suspect]
     Indication: ANXIETY
     Route: 048
     Dates: start: 19870101
  3. ABILIFY [Concomitant]
  4. GEODON [Concomitant]
  5. ZYPREXA [Concomitant]

REACTIONS (2)
  - DEPRESSION [None]
  - DIABETES MELLITUS [None]
